FAERS Safety Report 9971146 (Version 2)
Quarter: 2014Q1

REPORT INFORMATION
  Report Type: Report from Study
  Country: UA (occurrence: UA)
  Receive Date: 20140306
  Receipt Date: 20140326
  Transmission Date: 20141002
  Serious: Yes (Hospitalization)
  Sender: FDA-Public Use
  Company Number: PHHO2014UA003223

PATIENT
  Age: 48 Year
  Sex: Female

DRUGS (5)
  1. IMATINIB [Suspect]
     Indication: CHRONIC LEUKAEMIA
     Dosage: 400 MG, QD
     Route: 048
     Dates: start: 20090331, end: 20110224
  2. IMATINIB [Suspect]
     Dosage: 600 MG, QD
     Route: 048
     Dates: start: 20110225, end: 20131115
  3. AMLODIPINE BESILATE [Concomitant]
  4. SORBIFER DURULES [Concomitant]
  5. KALIPOZ [Concomitant]

REACTIONS (1)
  - Cell death [Recovered/Resolved]
